FAERS Safety Report 25427482 (Version 5)
Quarter: 2025Q3

REPORT INFORMATION
  Report Type: Report from Study
  Country: US (occurrence: US)
  Receive Date: 20250612
  Receipt Date: 20250821
  Transmission Date: 20251020
  Serious: No
  Sender: SUNOVION
  Company Number: US-SMPA-2025SPA006208AA

PATIENT
  Age: 69 Year
  Sex: Male

DRUGS (13)
  1. ORGOVYX [Suspect]
     Active Substance: RELUGOLIX
     Indication: Prostate cancer
     Dosage: 360 MG, SINGLE
     Route: 048
     Dates: start: 20250501, end: 20250501
  2. ORGOVYX [Suspect]
     Active Substance: RELUGOLIX
     Dosage: 120 MG, QD
     Route: 048
     Dates: start: 20250502
  3. LEVOFLOXACIN [Concomitant]
     Active Substance: LEVOFLOXACIN
  4. MAGNESIUM [Concomitant]
     Active Substance: MAGNESIUM
  5. SILDENAFIL [Concomitant]
     Active Substance: SILDENAFIL
  6. GLUCOSAMINE [Concomitant]
     Active Substance: GLUCOSAMINE
  7. ASPIRIN [Concomitant]
     Active Substance: ASPIRIN
  8. Hyaluronic acid sodium [Concomitant]
  9. VITAMIN C [Concomitant]
     Active Substance: ASCORBIC ACID
  10. ZINC [Concomitant]
     Active Substance: ZINC
  11. CALCIUM ACETATE [Concomitant]
     Active Substance: CALCIUM ACETATE
  12. SELENIUM [Concomitant]
     Active Substance: SELENIUM
  13. VITAMIN D [Concomitant]
     Active Substance: VITAMIN D NOS

REACTIONS (6)
  - Frequent bowel movements [Not Recovered/Not Resolved]
  - Thirst [Unknown]
  - Rectal tenesmus [Unknown]
  - Dry skin [Unknown]
  - Asthenia [Unknown]
  - Product dose omission in error [Recovered/Resolved]

NARRATIVE: CASE EVENT DATE: 20250501
